FAERS Safety Report 5897818-5 (Version None)
Quarter: 2008Q3

REPORT INFORMATION
  Report Type: 
  Country: None (occurrence: None)
  Receive Date: 20080923
  Receipt Date: 20080919
  Transmission Date: 20090109
  Serious: Yes (Death)
  Sender: FDA-Public Use
  Company Number: 2008JP002156

PATIENT
  Age: 42 Year
  Sex: Male
  Weight: 64.5 kg

DRUGS (26)
  1. PROGRAF [Suspect]
     Indication: STEM CELL TRANSPLANT
     Dosage: 3  MG, CONTINUOUS, IV DRIP
     Route: 041
     Dates: start: 20070529, end: 20071018
  2. PROGRAF [Suspect]
     Indication: STEM CELL TRANSPLANT
     Dosage: 1 MG, BID, ORAL
     Route: 048
     Dates: start: 20071019, end: 20071109
  3. PROGRAF [Suspect]
     Indication: STEM CELL TRANSPLANT
     Dosage: 1 MG, BID, ORAL
     Route: 048
     Dates: start: 20071019, end: 20071109
  4. CELLCEPT [Suspect]
     Indication: STEM CELL TRANSPLANT
     Dosage: 1 G, BID, ORAL;  0.75 G, BID, ORAL; 0.5 G; BID, ORAL;
     Route: 048
     Dates: start: 20070524, end: 20070701
  5. CELLCEPT [Suspect]
     Indication: STEM CELL TRANSPLANT
     Dosage: 1 G, BID, ORAL;  0.75 G, BID, ORAL; 0.5 G; BID, ORAL;
     Route: 048
     Dates: start: 20070702, end: 20070715
  6. CELLCEPT [Suspect]
     Indication: STEM CELL TRANSPLANT
     Dosage: 1 G, BID, ORAL;  0.75 G, BID, ORAL; 0.5 G; BID, ORAL;
     Route: 048
     Dates: start: 20070716, end: 20070731
  7. CELLCEPT [Suspect]
     Indication: STEM CELL TRANSPLANT
     Dosage: 1 G, BID, ORAL;  0.75 G, BID, ORAL; 0.5 G; BID, ORAL;
     Route: 048
     Dates: start: 20070801, end: 20071109
  8. PREDNISOLONE TAB [Suspect]
     Indication: STEM CELL TRANSPLANT
     Dosage: 75 MG, /D, IV DRIP; 60 G, UID/QD, IV DRIP; 55 MG, UID/QD, IV DRIP
     Route: 041
     Dates: start: 20070913, end: 20071015
  9. PREDNISOLONE TAB [Suspect]
     Indication: STEM CELL TRANSPLANT
     Dosage: 75 MG, /D, IV DRIP; 60 G, UID/QD, IV DRIP; 55 MG, UID/QD, IV DRIP
     Route: 041
     Dates: start: 20071016, end: 20071018
  10. PREDNISOLONE TAB [Suspect]
     Indication: STEM CELL TRANSPLANT
     Dosage: 75 MG, /D, IV DRIP; 60 G, UID/QD, IV DRIP; 55 MG, UID/QD, IV DRIP
     Route: 041
     Dates: start: 20070520
  11. PREDNISOLONE TAB [Suspect]
     Indication: STEM CELL TRANSPLANT
     Dosage: 25 MG, BID, ORAL; 22.5 MG, BID, ORAL
     Route: 048
     Dates: start: 20071019, end: 20071025
  12. PREDNISOLONE TAB [Suspect]
     Indication: STEM CELL TRANSPLANT
     Dosage: 25 MG, BID, ORAL; 22.5 MG, BID, ORAL
     Route: 048
     Dates: start: 20071026, end: 20071109
  13. REMICADE [Suspect]
     Indication: STEM CELL TRANSPLANT
     Dosage: 600 MG, UID.QD, IV DRIP
     Route: 041
     Dates: start: 20070914, end: 20070914
  14. REMICADE [Suspect]
     Indication: STEM CELL TRANSPLANT
     Dosage: 600 MG, UID.QD, IV DRIP
     Route: 041
     Dates: start: 20071001, end: 20071001
  15. BAKTAR (SULFAMETHOXAZOLE, TRIMETHOPRIM) TABLET [Concomitant]
  16. LEVOFLOXACIN [Concomitant]
  17. DIFLUCAN (FLUCONAZOLE) CAPSULE [Concomitant]
  18. LANSOPRAZOLE [Concomitant]
  19. PHELLOBERIN A (CLIOQUINOL) TABLET [Concomitant]
  20. ELENTAL    (VITAMINS NOS, MINERALS NOS) POWDER [Concomitant]
  21. BIOFERMIN R       (STREPTOCOCCUS FAECALIS) TABLET [Concomitant]
  22. LENDORMIN         (BROTIZOLAM) TABLET [Concomitant]
  23. URSO          (URSODEOXYCHOLIC ACID) TABLET [Concomitant]
  24. LASIX [Concomitant]
  25. THYRADIN S (LEVOTHYROXINE SODIUM) TABLET [Concomitant]
  26. GLAKAY (MENATETRENONE) TABLET [Concomitant]

REACTIONS (14)
  - BLOOD PRESSURE SYSTOLIC DECREASED [None]
  - BONE MARROW FAILURE [None]
  - BRONCHOPULMONARY ASPERGILLOSIS [None]
  - DEPRESSED LEVEL OF CONSCIOUSNESS [None]
  - DIARRHOEA [None]
  - DISEASE PROGRESSION [None]
  - GRAFT VERSUS HOST DISEASE [None]
  - HEART RATE INCREASED [None]
  - HISTIOCYTOSIS HAEMATOPHAGIC [None]
  - SEPSIS [None]
  - SEPTIC EMBOLUS [None]
  - SERUM FERRITIN INCREASED [None]
  - SKIN DISCOLOURATION [None]
  - THROMBOSIS [None]
